FAERS Safety Report 17035646 (Version 1)
Quarter: 2019Q4

REPORT INFORMATION
  Report Type: Spontaneous
  Country: US (occurrence: US)
  Receive Date: 20191114
  Receipt Date: 20191114
  Transmission Date: 20200122
  Serious: Yes (Other)
  Sender: FDA-Public Use
  Company Number: None

PATIENT
  Age: 73 Year
  Sex: Female
  Weight: 117 kg

DRUGS (1)
  1. LEVEMIR [Suspect]
     Active Substance: INSULIN DETEMIR
     Indication: TYPE 2 DIABETES MELLITUS
     Dosage: ?          QUANTITY:40 INJECTION(S);?
     Route: 030

REACTIONS (20)
  - Urticaria [None]
  - Skin induration [None]
  - Feeling abnormal [None]
  - Drug ineffective [None]
  - Weight increased [None]
  - Hypersensitivity [None]
  - Scab [None]
  - Skin burning sensation [None]
  - Skin tightness [None]
  - Arthralgia [None]
  - Eye pruritus [None]
  - Rhinorrhoea [None]
  - Gait disturbance [None]
  - Asthenia [None]
  - Injection site reaction [None]
  - Moaning [None]
  - Oedema peripheral [None]
  - Insomnia [None]
  - Paranasal sinus discomfort [None]
  - Dizziness [None]

NARRATIVE: CASE EVENT DATE: 20191001
